FAERS Safety Report 9285873 (Version 2)
Quarter: 2014Q3

REPORT INFORMATION
  Report Type: Spontaneous
  Country: US (occurrence: US)
  Receive Date: 20130513
  Receipt Date: 20140721
  Transmission Date: 20150326
  Serious: Yes (Hospitalization)
  Sender: FDA-Public Use
  Company Number: US-BAYER-2013-057626

PATIENT
  Age: 23 Year
  Sex: Female

DRUGS (4)
  1. YAZ [Suspect]
     Active Substance: DROSPIRENONE\ETHINYL ESTRADIOL
     Dosage: UNK
     Dates: start: 2008, end: 2010
  2. OLMESARTAN [Concomitant]
     Active Substance: OLMESARTAN
     Dosage: UNK
     Dates: start: 2010
  3. YAZ [Suspect]
     Active Substance: DROSPIRENONE\ETHINYL ESTRADIOL
     Dosage: UNK
     Dates: start: 2010
  4. LISINOPRIL. [Concomitant]
     Active Substance: LISINOPRIL
     Dosage: UNK
     Dates: start: 2010, end: 2011

REACTIONS (12)
  - Anxiety [None]
  - Pain [None]
  - Chest pain [None]
  - Arthralgia [None]
  - Pulmonary embolism [None]
  - Deep vein thrombosis [None]
  - Abdominal pain [None]
  - Pain in extremity [None]
  - Injury [None]
  - Emotional distress [None]
  - General physical health deterioration [None]
  - Mental disorder [None]

NARRATIVE: CASE EVENT DATE: 201012
